FAERS Safety Report 13286214 (Version 1)
Quarter: 2017Q1

REPORT INFORMATION
  Report Type: Spontaneous
  Country: US (occurrence: US)
  Receive Date: 20170302
  Receipt Date: 20170302
  Transmission Date: 20170428
  Serious: No
  Sender: FDA-Public Use
  Company Number: US-ALLERGAN-1000083163

PATIENT
  Sex: Female

DRUGS (3)
  1. VIIBRYD [Suspect]
     Active Substance: VILAZODONE HYDROCHLORIDE
     Indication: DEPRESSION
     Dosage: 10 MG, QD
     Route: 048
     Dates: start: 20160126, end: 20160131
  2. VIIBRYD [Suspect]
     Active Substance: VILAZODONE HYDROCHLORIDE
     Dosage: 1/4 OF A PILL
     Route: 048
     Dates: start: 20160209, end: 20160211
  3. VIIBRYD [Suspect]
     Active Substance: VILAZODONE HYDROCHLORIDE
     Dosage: 1/2 PILL
     Route: 048
     Dates: start: 20160202, end: 20160203

REACTIONS (7)
  - Abdominal discomfort [Unknown]
  - Intentional product misuse [Recovered/Resolved]
  - Nausea [Unknown]
  - Abdominal distension [Unknown]
  - Intentional product misuse [Recovered/Resolved]
  - Diarrhoea [Unknown]
  - Intentional product misuse [Recovered/Resolved]

NARRATIVE: CASE EVENT DATE: 2016
